FAERS Safety Report 6211505-5 (Version None)
Quarter: 2009Q2

REPORT INFORMATION
  Report Type: 
  Country: None (occurrence: None)
  Receive Date: 20090602
  Receipt Date: 20090525
  Transmission Date: 20091009
  Serious: Yes (Hospitalization)
  Sender: FDA-Public Use
  Company Number: B0576563A

PATIENT
  Age: 68 Year
  Sex: Female

DRUGS (4)
  1. NICOTINE [Suspect]
     Indication: SMOKING CESSATION THERAPY
     Route: 062
     Dates: start: 20090401, end: 20090406
  2. PREDNISOLONE [Suspect]
  3. CLARITHROMYCIN [Suspect]
     Dosage: 1000MG PER DAY
  4. NEBULIZER [Suspect]
     Indication: CHRONIC OBSTRUCTIVE PULMONARY DISEASE

REACTIONS (4)
  - DRUG INTERACTION [None]
  - DYSPNOEA [None]
  - EXERCISE TOLERANCE DECREASED [None]
  - PRODUCTIVE COUGH [None]
